FAERS Safety Report 9672164 (Version 1)
Quarter: 2013Q4

REPORT INFORMATION
  Report Type: Spontaneous
  Country: US (occurrence: US)
  Receive Date: 20131106
  Receipt Date: 20131106
  Transmission Date: 20140711
  Serious: No
  Sender: FDA-Public Use
  Company Number: US-ENDO PHARMACEUTICALS INC.-HCDA20130012

PATIENT
  Sex: Female
  Weight: 72.64 kg

DRUGS (2)
  1. HYDROCODONE/ACETAMINOPHEN 10MG/500MG [Suspect]
     Indication: HEADACHE
     Dosage: 60/3000 MG
     Route: 048
     Dates: start: 20121010, end: 20121211
  2. HYDROCODONE/ACETAMINOPHEN 10MG/500MG [Suspect]
     Indication: ARTHRITIS

REACTIONS (2)
  - Abdominal pain upper [Not Recovered/Not Resolved]
  - Dyspnoea [Recovered/Resolved]
